FAERS Safety Report 15772683 (Version 1)
Quarter: 2018Q4

REPORT INFORMATION
  Report Type: Spontaneous
  Country: US (occurrence: US)
  Receive Date: 20181228
  Receipt Date: 20181228
  Transmission Date: 20190205
  Serious: Yes (Other)
  Sender: FDA-Public Use
  Company Number: US-PFIZER INC-2018529438

PATIENT
  Age: 43 Year
  Sex: Female
  Weight: 89.81 kg

DRUGS (1)
  1. PRISTIQ EXTENDED-RELEASE [Suspect]
     Active Substance: DESVENLAFAXINE SUCCINATE
     Indication: ANXIETY
     Dosage: UNK UNK, 1X/DAY
     Route: 048
     Dates: end: 20181216

REACTIONS (5)
  - Hernia [Unknown]
  - Malaise [Not Recovered/Not Resolved]
  - Headache [Recovering/Resolving]
  - Hypersomnia [Unknown]
  - Drug effective for unapproved indication [Unknown]

NARRATIVE: CASE EVENT DATE: 20181217
